FAERS Safety Report 6489790-4 (Version None)
Quarter: 2009Q4

REPORT INFORMATION
  Report Type: 
  Country: None (occurrence: None)
  Receive Date: 20091211
  Receipt Date: 20091209
  Transmission Date: 20100525
  Serious: Yes (Death)
  Sender: FDA-Public Use
  Company Number: US-ASTRAZENECA-2007UW14900

PATIENT
  Age: 95 Year
  Sex: Female
  Weight: 51.7 kg

DRUGS (14)
  1. SEROQUEL [Suspect]
     Indication: SLEEP DISORDER
     Dosage: 25 MG TO 75 MG
     Route: 048
     Dates: start: 20040923, end: 20080729
  2. SEROQUEL [Suspect]
     Route: 048
     Dates: start: 20050719
  3. REMERON [Concomitant]
     Route: 048
     Dates: start: 20040228
  4. ZYPREXA [Concomitant]
     Dosage: 5-7.5 MG B.I.D
     Dates: start: 20040228
  5. LISINOPRIL [Concomitant]
     Dosage: 10 MG DAILY, 20 MG Q.D
     Route: 048
     Dates: start: 20040928
  6. RISPERDAL [Concomitant]
     Route: 048
     Dates: start: 20040923
  7. TRAZODONE [Concomitant]
     Route: 048
     Dates: start: 20040923
  8. LORAZEPAM [Concomitant]
     Route: 048
  9. DIGOXIN [Concomitant]
     Dates: start: 20040930
  10. NEURONTIN [Concomitant]
  11. BUSPIRONE HCL [Concomitant]
  12. NITROFURANTOIN [Concomitant]
     Dates: start: 20041101
  13. DIGITEK [Concomitant]
     Dosage: 125 MCG
     Dates: start: 20041101
  14. MIRTAZAPINE [Concomitant]
     Dates: start: 20041101

REACTIONS (5)
  - DEMENTIA [None]
  - DIABETES MELLITUS [None]
  - HYPOGLYCAEMIA [None]
  - PNEUMONIA ASPIRATION [None]
  - UROSEPSIS [None]
